FAERS Safety Report 4763889-2 (Version None)
Quarter: 2005Q3

REPORT INFORMATION
  Report Type: 
  Country: None (occurrence: None)
  Receive Date: 20050906
  Receipt Date: 20050510
  Transmission Date: 20060218
  Serious: No
  Sender: FDA-Public Use
  Company Number: 2005-BP-07769BP

PATIENT
  Age: 62 Year
  Sex: Male
  Weight: 36.061 kg

DRUGS (10)
  1. SPIRIVA [Suspect]
     Indication: CHRONIC OBSTRUCTIVE PULMONARY DISEASE
     Dosage: 18 MCG (18 MCG) IH
     Route: 055
     Dates: start: 20050426, end: 20050430
  2. POTASSIUM CHLORIDE [Concomitant]
  3. FUROSEMIDE [Concomitant]
  4. DIOVAN [Concomitant]
  5. ADVAIR DISKUS 100/50 [Concomitant]
  6. LOPID [Concomitant]
  7. ACETYLSALICYLIC ACID SRT [Concomitant]
  8. MULTIVITAMIN [Concomitant]
  9. VITAMIN C (ASCORBIC ACID) [Concomitant]
  10. GLUCOVANCE [Concomitant]

REACTIONS (1)
  - DERMATITIS BULLOUS [None]
